FAERS Safety Report 4632931-1 (Version None)
Quarter: 2005Q2

REPORT INFORMATION
  Report Type: 
  Country: None (occurrence: None)
  Receive Date: 20050412
  Receipt Date: 20050209
  Transmission Date: 20051028
  Serious: Yes (Other)
  Sender: FDA-Public Use
  Company Number: JP-ROCHE-396273

PATIENT
  Age: 36 Year
  Sex: Male

DRUGS (2)
  1. TAMIFLU [Suspect]
     Route: 048
     Dates: start: 20050124, end: 20050127
  2. TAMIFLU [Suspect]
     Route: 048
     Dates: start: 20050128, end: 20050128

REACTIONS (5)
  - BACTERIAL INFECTION [None]
  - CHEST PAIN [None]
  - MALAISE [None]
  - PYREXIA [None]
  - SUPRAVENTRICULAR TACHYCARDIA [None]
